FAERS Safety Report 12355023 (Version 1)
Quarter: 2016Q2

REPORT INFORMATION
  Report Type: Spontaneous
  Country: US (occurrence: None)
  Receive Date: 20160510
  Receipt Date: 20160510
  Transmission Date: 20160815
  Serious: Yes (Disabling)
  Sender: FDA-Public Use
  Company Number: None

PATIENT
  Age: 52 Year
  Sex: Male
  Weight: 108.86 kg

DRUGS (4)
  1. AMPHETAMINE SALTS, 12.5 MG AMPHETAMINE /DEXTROAMPHETAMINE SA [Suspect]
     Active Substance: AMPHETAMINE ASPARTATE\AMPHETAMINE SULFATE\DEXTROAMPHETAMINE SACCHARATE\DEXTROAMPHETAMINE SULFATE
     Indication: OBESITY
     Dosage: 1 TABLET(S) FOUR TIMES A DAY TAKEN BY MOUTH
     Route: 048
     Dates: start: 20160101, end: 20160429
  2. AMPHETAMINE SALTS, 12.5 MG AMPHETAMINE /DEXTROAMPHETAMINE SA [Suspect]
     Active Substance: AMPHETAMINE ASPARTATE\AMPHETAMINE SULFATE\DEXTROAMPHETAMINE SACCHARATE\DEXTROAMPHETAMINE SULFATE
     Indication: DEPRESSION
     Dosage: 1 TABLET(S) FOUR TIMES A DAY TAKEN BY MOUTH
     Route: 048
     Dates: start: 20160101, end: 20160429
  3. AMPHETAMINE SALTS, 12.5 MG AMPHETAMINE /DEXTROAMPHETAMINE SA [Suspect]
     Active Substance: AMPHETAMINE ASPARTATE\AMPHETAMINE SULFATE\DEXTROAMPHETAMINE SACCHARATE\DEXTROAMPHETAMINE SULFATE
     Indication: ATTENTION DEFICIT/HYPERACTIVITY DISORDER
     Dosage: 1 TABLET(S) FOUR TIMES A DAY TAKEN BY MOUTH
     Route: 048
     Dates: start: 20160101, end: 20160429
  4. AMPHETAMINE SALTS, 12.5 MG AMPHETAMINE /DEXTROAMPHETAMINE SA [Suspect]
     Active Substance: AMPHETAMINE ASPARTATE\AMPHETAMINE SULFATE\DEXTROAMPHETAMINE SACCHARATE\DEXTROAMPHETAMINE SULFATE
     Indication: NARCOLEPSY
     Dosage: 1 TABLET(S) FOUR TIMES A DAY TAKEN BY MOUTH
     Route: 048
     Dates: start: 20160101, end: 20160429

REACTIONS (6)
  - Lethargy [None]
  - Hypersomnia [None]
  - Depression [None]
  - Fatigue [None]
  - Hyperphagia [None]
  - Weight increased [None]
